FAERS Safety Report 18954346 (Version 1)
Quarter: 2021Q1

REPORT INFORMATION
  Report Type: Spontaneous
  Country: IT (occurrence: IT)
  Receive Date: 20210301
  Receipt Date: 20210301
  Transmission Date: 20210420
  Serious: Yes (Hospitalization, Other)
  Sender: FDA-Public Use
  Company Number: IT-PFIZER INC-2021168018

PATIENT
  Age: 25 Year
  Sex: Male

DRUGS (3)
  1. CANNABIS [Concomitant]
     Active Substance: CANNABIS SATIVA SUBSP. INDICA TOP
     Dosage: 12 G, DAILY
  2. PREGABALIN. [Suspect]
     Active Substance: PREGABALIN
     Dosage: 3000 MG, DAILY(HIGHEST DOSE)
  3. PREGABALIN. [Suspect]
     Active Substance: PREGABALIN
     Indication: ANALGESIC THERAPY
     Dosage: UNK
     Dates: start: 2018

REACTIONS (20)
  - Irritability [Recovered/Resolved]
  - Influenza like illness [Recovered/Resolved]
  - Confusional state [Recovered/Resolved]
  - Derealisation [Recovered/Resolved]
  - Visual impairment [Recovered/Resolved]
  - Insomnia [Recovered/Resolved]
  - Dyspnoea [Recovered/Resolved]
  - Dizziness [Recovered/Resolved]
  - Tachycardia [Recovered/Resolved]
  - Depersonalisation/derealisation disorder [Recovered/Resolved]
  - Headache [Recovered/Resolved]
  - Palpitations [Recovered/Resolved]
  - Substance use disorder [Recovered/Resolved]
  - Dysphoria [Recovered/Resolved]
  - Fatigue [Recovered/Resolved]
  - Back pain [Recovered/Resolved]
  - Off label use [Unknown]
  - Overdose [Unknown]
  - Agitation [Recovered/Resolved]
  - Eye pain [Recovered/Resolved]

NARRATIVE: CASE EVENT DATE: 2018
